FAERS Safety Report 17900678 (Version 1)
Quarter: 2020Q2

REPORT INFORMATION
  Report Type: Spontaneous
  Country: US (occurrence: US)
  Receive Date: 20200616
  Receipt Date: 20200616
  Transmission Date: 20200714
  Serious: No
  Sender: FDA-Public Use
  Company Number: None

PATIENT
  Age: 26 Year
  Sex: Female
  Weight: 135 kg

DRUGS (10)
  1. RSO-SUGAR CANDY 1G [Suspect]
     Active Substance: CANNABIDIOL\CANNABIS SATIVA SEED OIL
     Indication: PAIN
     Dosage: ?          QUANTITY:1 DROP(S);?
     Route: 048
     Dates: start: 20200612, end: 20200614
  2. AMITRIPTYLINE [Concomitant]
     Active Substance: AMITRIPTYLINE
  3. DIPHENHYDRAMINE HCL 25 MG [Suspect]
     Active Substance: DIPHENHYDRAMINE HYDROCHLORIDE
     Indication: SUNBURN
     Dosage: ?          QUANTITY:1 CAPSULE(S);?
     Route: 048
     Dates: start: 20200614, end: 20200614
  4. IRON SUPPLEMENT [Concomitant]
     Active Substance: IRON
  5. NORGESTIMATE-ETHINYL ESTRADIOL [Concomitant]
     Active Substance: ETHINYL ESTRADIOL\NORGESTIMATE
  6. BUDESONIDE-FORMOTEROL [Concomitant]
     Active Substance: BUDESONIDE\FORMOTEROL
  7. MEDICAL MARIJUANA CARD HOLDER [Concomitant]
  8. ALBUTEROL HFA [Concomitant]
     Active Substance: ALBUTEROL SULFATE
  9. DIPHENHYDRAMINE HCL 25 MG [Suspect]
     Active Substance: DIPHENHYDRAMINE HYDROCHLORIDE
     Indication: PRURITUS
     Dosage: ?          QUANTITY:1 CAPSULE(S);?
     Route: 048
     Dates: start: 20200614, end: 20200614
  10. RSO-SUGAR CANDY 1G [Suspect]
     Active Substance: CANNABIDIOL\CANNABIS SATIVA SEED OIL
     Indication: EHLERS-DANLOS SYNDROME
     Dosage: ?          QUANTITY:1 DROP(S);?
     Route: 048
     Dates: start: 20200612, end: 20200614

REACTIONS (16)
  - Malaise [None]
  - Discomfort [None]
  - Limb discomfort [None]
  - Cold sweat [None]
  - Dizziness [None]
  - Muscle contractions involuntary [None]
  - Abdominal discomfort [None]
  - Arthralgia [None]
  - Sensory loss [None]
  - Suffocation feeling [None]
  - Nausea [None]
  - Muscle twitching [None]
  - Skin burning sensation [None]
  - Feeling abnormal [None]
  - Cyanosis [None]
  - Panic reaction [None]

NARRATIVE: CASE EVENT DATE: 20200614
